FAERS Safety Report 11588987 (Version 3)
Quarter: 2015Q4

REPORT INFORMATION
  Report Type: Spontaneous
  Country: CA (occurrence: CA)
  Receive Date: 20151002
  Receipt Date: 20151015
  Transmission Date: 20160304
  Serious: Yes (Other)
  Sender: FDA-Public Use
  Company Number: CA-SA-2015SA148152

PATIENT
  Sex: Female

DRUGS (2)
  1. XELJANZ [Concomitant]
     Active Substance: TOFACITINIB CITRATE
     Indication: RHEUMATOID ARTHRITIS
     Route: 048
     Dates: start: 20150924
  2. ARAVA [Suspect]
     Active Substance: LEFLUNOMIDE
     Indication: RHEUMATOID ARTHRITIS
     Route: 065

REACTIONS (7)
  - Therapeutic response decreased [Unknown]
  - Pain [Unknown]
  - Swelling [Unknown]
  - Immunodeficiency [Recovering/Resolving]
  - Rheumatoid arthritis [Recovering/Resolving]
  - Bunion operation [Unknown]
  - Infection [Recovered/Resolved]
